FAERS Safety Report 4434933-7 (Version None)
Quarter: 2004Q3

REPORT INFORMATION
  Report Type: 
  Country: None (occurrence: None)
  Receive Date: 20040825
  Receipt Date: 20040630
  Transmission Date: 20050211
  Serious: Yes (Death, Other)
  Sender: FDA-Public Use
  Company Number: JP-BRISTOL-MYERS SQUIBB COMPANY-12679544

PATIENT
  Age: 72 Year
  Sex: Female

DRUGS (6)
  1. ENDOXAN [Suspect]
     Indication: GLOMERULONEPHRITIS MEMBRANOUS
     Route: 041
     Dates: start: 20040301, end: 20040101
  2. PREDNISOLONE [Suspect]
     Indication: GLOMERULONEPHRITIS MEMBRANOUS
     Route: 048
     Dates: start: 20040201
  3. GANCICLOVIR [Suspect]
     Dates: start: 20040501
  4. BAKTAR [Concomitant]
     Dates: start: 20040424, end: 20040516
  5. PREDONINE [Concomitant]
     Dates: start: 20040201, end: 20040605
  6. PENTAMIDINE ISETHIONATE [Concomitant]
     Dates: start: 20040101, end: 20040424

REACTIONS (3)
  - PLATELET COUNT DECREASED [None]
  - PNEUMONIA CYTOMEGALOVIRAL [None]
  - PULMONARY FIBROSIS [None]
